FAERS Safety Report 19700404 (Version 1)
Quarter: 2021Q3

REPORT INFORMATION
  Report Type: Spontaneous
  Country: FR (occurrence: FR)
  Receive Date: 20210813
  Receipt Date: 20210813
  Transmission Date: 20211014
  Serious: Yes (Other)
  Sender: FDA-Public Use
  Company Number: FR-MYLANLABS-2021M1049962

PATIENT
  Age: 56 Year
  Sex: Female

DRUGS (18)
  1. PEMETREXED. [Suspect]
     Active Substance: PEMETREXED
     Indication: PRODUCT USED FOR UNKNOWN INDICATION
     Dosage: 4 CYCLES
     Route: 065
  2. PEMETREXED. [Suspect]
     Active Substance: PEMETREXED
     Dosage: 10 CYCLES
     Route: 065
     Dates: start: 201204, end: 201308
  3. GEMCITABINE. [Suspect]
     Active Substance: GEMCITABINE
     Indication: PRODUCT USED FOR UNKNOWN INDICATION
     Dosage: 3 CYCLES
  4. AFATINIB [Suspect]
     Active Substance: AFATINIB
     Dosage: 30 MILLIGRAM
     Route: 065
     Dates: start: 201502
  5. DOCETAXEL. [Suspect]
     Active Substance: DOCETAXEL
     Indication: LUNG ADENOCARCINOMA
     Dosage: UNK
     Route: 065
     Dates: start: 200612, end: 201502
  6. AFATINIB [Suspect]
     Active Substance: AFATINIB
     Dosage: 40 MILLIGRAM, AFTER 1 MONTH
     Route: 065
  7. AFATINIB [Suspect]
     Active Substance: AFATINIB
     Dosage: UNK
  8. AFATINIB [Suspect]
     Active Substance: AFATINIB
     Dosage: 30 MILLIGRAM
     Route: 065
     Dates: start: 201710
  9. GEFITINIB. [Suspect]
     Active Substance: GEFITINIB
     Indication: LUNG ADENOCARCINOMA
     Dosage: UNK
     Route: 065
     Dates: start: 200612, end: 201502
  10. GEMCITABINE. [Suspect]
     Active Substance: GEMCITABINE
     Dosage: SIX CYCLES
     Dates: start: 201204, end: 201308
  11. VINORELBINE [Suspect]
     Active Substance: VINORELBINE TARTRATE
     Indication: LUNG ADENOCARCINOMA
     Dosage: UNK
     Route: 065
     Dates: start: 200612, end: 201502
  12. PACLITAXEL. [Suspect]
     Active Substance: PACLITAXEL
     Indication: LUNG ADENOCARCINOMA
     Dosage: 11 CYCLES WEEKLY
     Route: 065
     Dates: start: 201408, end: 201411
  13. ATEZOLIZUMAB. [Suspect]
     Active Substance: ATEZOLIZUMAB
     Indication: LUNG ADENOCARCINOMA
     Dosage: SIX CYCLES
     Route: 065
     Dates: start: 201808, end: 201812
  14. AFATINIB [Suspect]
     Active Substance: AFATINIB
     Dosage: 30 MILLIGRAM
     Dates: start: 201804
  15. CARBOPLATIN. [Suspect]
     Active Substance: CARBOPLATIN
     Indication: LUNG ADENOCARCINOMA
     Dosage: UNK
     Route: 065
     Dates: start: 200612, end: 201502
  16. AFATINIB [Suspect]
     Active Substance: AFATINIB
     Indication: PRODUCT USED FOR UNKNOWN INDICATION
     Dosage: 40 MILLIGRAM, AFTER 2 WEEK
     Route: 065
     Dates: end: 201703
  17. AFATINIB [Suspect]
     Active Substance: AFATINIB
     Dosage: 40 MILLIGRAM, AFTER 2 WEEK
     Route: 065
  18. ERLOTINIB [Suspect]
     Active Substance: ERLOTINIB
     Indication: LUNG ADENOCARCINOMA
     Dosage: UNK
     Route: 065
     Dates: start: 200612, end: 201502

REACTIONS (4)
  - Cough [Unknown]
  - Hypoxia [Unknown]
  - Lung infiltration [Unknown]
  - Pyrexia [Unknown]
